FAERS Safety Report 13268678 (Version 1)
Quarter: 2017Q1

REPORT INFORMATION
  Report Type: Spontaneous
  Country: US (occurrence: US)
  Receive Date: 20170224
  Receipt Date: 20170224
  Transmission Date: 20170428
  Serious: No
  Sender: FDA-Public Use
  Company Number: US-RISING PHARMACEUTICALS, INC.-2015RIS00195

PATIENT
  Age: 49 Year
  Sex: Male
  Weight: 99.77 kg

DRUGS (5)
  1. DICLOFENAC [Suspect]
     Active Substance: DICLOFENAC
     Indication: CATARACT OPERATION
     Dosage: 1 GTT, LEFT EYE, EVERY 30 MINUTES BEFORE SURGERY
     Route: 047
     Dates: start: 20151228, end: 20151228
  2. DICLOFENAC [Suspect]
     Active Substance: DICLOFENAC
     Dosage: 1 GTT, LEFT EYE, 3X/DAY
     Dates: start: 20151229
  3. PREDNISOLONE 1 % EYE DROP [Concomitant]
     Dosage: 1 DOSAGE UNITS, 3X/DAY
     Route: 047
  4. CIPROFLOXACIN 0.3 % EYE DROP [Concomitant]
     Dosage: 1 DOSAGE UNITS, 3X/DAY
  5. LISINOPRIL. [Concomitant]
     Active Substance: LISINOPRIL
     Dosage: 20 MG, 1X/DAY

REACTIONS (1)
  - Application site pain [Recovered/Resolved]

NARRATIVE: CASE EVENT DATE: 20151229
